FAERS Safety Report 24789782 (Version 1)
Quarter: 2024Q4

REPORT INFORMATION
  Report Type: Spontaneous
  Country: CA (occurrence: CA)
  Receive Date: 20241230
  Receipt Date: 20241230
  Transmission Date: 20250114
  Serious: Yes (Death, Hospitalization, Other)
  Sender: SANOFI AVENTIS
  Company Number: CA-SA-2024SA381865

PATIENT
  Age: 78 Year
  Sex: Female

DRUGS (3)
  1. CLOPIDOGREL BISULFATE [Interacting]
     Active Substance: CLOPIDOGREL BISULFATE
  2. ASPIRIN [Interacting]
     Active Substance: ASPIRIN
  3. RIVAROXABAN [Interacting]
     Active Substance: RIVAROXABAN
     Indication: Atrial fibrillation
     Dosage: 15 MG, QD

REACTIONS (5)
  - Gastritis [Fatal]
  - COVID-19 [Fatal]
  - Labelled drug-drug interaction medication error [Fatal]
  - Gastrointestinal haemorrhage [Fatal]
  - Upper gastrointestinal haemorrhage [Fatal]
